FAERS Safety Report 4931112-1 (Version None)
Quarter: 2006Q1

REPORT INFORMATION
  Report Type: 
  Country: None (occurrence: None)
  Receive Date: 20060227
  Receipt Date: 20060216
  Transmission Date: 20060701
  Serious: Yes (Other)
  Sender: FDA-Public Use
  Company Number: 2006-02-1105

PATIENT
  Age: 58 Year
  Sex: Female
  Weight: 41 kg

DRUGS (4)
  1. PEG-INTRON [Suspect]
     Indication: HEPATITIS C
     Dosage: 60 MCG QW SUBCUTANEOUS
     Route: 058
     Dates: start: 20050206, end: 20060213
  2. REBETOL [Suspect]
     Indication: HEPATITIS C
     Dosage: 600 MG ORAL
     Route: 048
     Dates: start: 20060206, end: 20060212
  3. PEGASYS [Suspect]
     Dosage: 180 MCG QW SUBCUTANEOUS
     Route: 058
     Dates: start: 20051107, end: 20060107
  4. MARZULENE S GRANULES 3 PACKS ORAL [Concomitant]

REACTIONS (1)
  - SUBARACHNOID HAEMORRHAGE [None]
